FAERS Safety Report 5474050-0 (Version None)
Quarter: 2007Q4

REPORT INFORMATION
  Report Type: 
  Country: None (occurrence: None)
  Receive Date: 20071002
  Receipt Date: 20070920
  Transmission Date: 20080405
  Serious: Yes (Hospitalization)
  Sender: FDA-Public Use
  Company Number: PHHO2006BR04853

PATIENT
  Age: 22 Year
  Sex: Male
  Weight: 92 kg

DRUGS (3)
  1. RITALIN [Suspect]
     Dosage: 20 MG, QD
     Route: 048
  2. DIOVAN HCT [Suspect]
     Indication: HYPERTENSION
     Dosage: 80/12.5 MG
     Route: 048
     Dates: start: 20050101, end: 20060101
  3. PAROXETINE [Concomitant]

REACTIONS (7)
  - ANGIOPLASTY [None]
  - BLOOD CHOLESTEROL INCREASED [None]
  - CHEST PAIN [None]
  - HYPERTENSION [None]
  - INFARCTION [None]
  - MALAISE [None]
  - THROMBOSIS [None]
